FAERS Safety Report 7431973-0 (Version None)
Quarter: 2011Q2

REPORT INFORMATION
  Report Type: 
  Country: None (occurrence: None)
  Receive Date: 20110420
  Receipt Date: 20110420
  Transmission Date: 20111010
  Serious: Yes (Other)
  Sender: FDA-Public Use
  Company Number: None

PATIENT
  Age: 52 Year
  Sex: Female
  Weight: 65.7716 kg

DRUGS (1)
  1. PRILOSEC [Suspect]
     Indication: GASTROOESOPHAGEAL REFLUX DISEASE
     Dosage: 1 A DAY PO
     Route: 048
     Dates: start: 20100201, end: 20110402

REACTIONS (14)
  - HEADACHE [None]
  - NECK PAIN [None]
  - BURSITIS [None]
  - NO THERAPEUTIC RESPONSE [None]
  - PRODUCT QUALITY ISSUE [None]
  - FACET JOINT SYNDROME [None]
  - NUCLEAR MAGNETIC RESONANCE IMAGING ABNORMAL [None]
  - MIGRAINE [None]
  - ALOPECIA [None]
  - GAIT DISTURBANCE [None]
  - FALL [None]
  - UNEVALUABLE EVENT [None]
  - PRODUCT LABEL ISSUE [None]
  - ARTHRALGIA [None]
